FAERS Safety Report 24306633 (Version 1)
Quarter: 2024Q3

REPORT INFORMATION
  Report Type: Spontaneous
  Country: NL (occurrence: NL)
  Receive Date: 20240911
  Receipt Date: 20240911
  Transmission Date: 20241016
  Serious: Yes (Death, Other)
  Sender: CELLTRION
  Company Number: NL-CELLTRION INC.-2022NL005956

PATIENT

DRUGS (1)
  1. ADALIMUMAB [Suspect]
     Active Substance: ADALIMUMAB
     Indication: Crohn^s disease
     Dosage: 40 MILLIGRAM, QWK, ADDITIONAL INFORMATION ON DRUG: DOSAGE1: UNIT=NOT AVAILABLE
     Route: 065

REACTIONS (4)
  - Death [Fatal]
  - Brain neoplasm [Unknown]
  - Therapeutic response unexpected [Unknown]
  - Therapy partial responder [Unknown]
